FAERS Safety Report 8322242-5 (Version None)
Quarter: 2012Q2

REPORT INFORMATION
  Report Type: 
  Country: None (occurrence: None)
  Receive Date: 20120430
  Receipt Date: 20120419
  Transmission Date: 20120825
  Serious: Yes (Hospitalization, Other)
  Sender: FDA-Public Use
  Company Number: US-JNJFOC-20120410155

PATIENT
  Sex: Female
  Weight: 107.05 kg

DRUGS (4)
  1. TYLENOL (CAPLET) [Concomitant]
     Indication: PAIN
     Route: 048
     Dates: start: 20090101
  2. VICODIN [Concomitant]
     Indication: PAIN
     Dosage: 10/325 MG
     Route: 048
     Dates: start: 20090101
  3. REMICADE [Suspect]
     Indication: RHEUMATOID ARTHRITIS
     Route: 042
     Dates: start: 20100101, end: 20120101
  4. FENTANYL-100 [Concomitant]
     Indication: PAIN
     Route: 065
     Dates: start: 20090101

REACTIONS (16)
  - ARTHRITIS [None]
  - CARDIAC FAILURE CONGESTIVE [None]
  - LIVER INJURY [None]
  - CELLULITIS [None]
  - DYSPNOEA [None]
  - SPINAL COLUMN STENOSIS [None]
  - AMNESIA [None]
  - LUNG HYPERINFLATION [None]
  - GAIT DISTURBANCE [None]
  - HYPERSOMNIA [None]
  - URINARY TRACT INFECTION [None]
  - PAIN IN EXTREMITY [None]
  - OSTEOPOROSIS [None]
  - BODY HEIGHT DECREASED [None]
  - WHEEZING [None]
  - CONFUSIONAL STATE [None]
